FAERS Safety Report 8450977-2 (Version None)
Quarter: 2012Q2

REPORT INFORMATION
  Report Type: 
  Country: None (occurrence: None)
  Receive Date: 20120620
  Receipt Date: 20120620
  Transmission Date: 20120825
  Serious: Yes (Other)
  Sender: FDA-Public Use
  Company Number: US-PFIZER INC-2009US-24401

PATIENT
  Age: 32 Year
  Sex: Male

DRUGS (7)
  1. BENAZEPRIL HYDROCHLORIDE [Suspect]
     Dosage: 32 TABLETS
     Route: 065
  2. LEVOTHYROXINE [Suspect]
     Dosage: UNK
     Route: 065
  3. BUPROPION HCL [Suspect]
     Dosage: UNK
     Route: 065
  4. QUETIAPINE [Suspect]
     Dosage: UNK
     Route: 065
  5. VERAPAMIL HCL [Suspect]
     Dosage: 13.44 G, UNK
     Route: 065
  6. CLONAZEPAM [Suspect]
     Dosage: 22 MG, UNK
     Route: 065
  7. ZOLPIDEM TARTRATE [Suspect]
     Dosage: 200 MG, UNK
     Route: 065

REACTIONS (3)
  - OVERDOSE [None]
  - TOXICITY TO VARIOUS AGENTS [None]
  - SHOCK [None]
